FAERS Safety Report 23331783 (Version 7)
Quarter: 2025Q2

REPORT INFORMATION
  Report Type: Spontaneous
  Country: PT (occurrence: PT)
  Receive Date: 20231222
  Receipt Date: 20250501
  Transmission Date: 20250716
  Serious: Yes (Death, Other)
  Sender: NOVARTIS
  Company Number: PT-KYOWAKIRIN-2023KK018607AA

PATIENT

DRUGS (101)
  1. ADALIMUMAB [Interacting]
     Active Substance: ADALIMUMAB
     Indication: Product used for unknown indication
     Route: 065
  2. IMATINIB [Interacting]
     Active Substance: IMATINIB
     Indication: Product used for unknown indication
     Route: 065
  3. LETROZOLE [Interacting]
     Active Substance: LETROZOLE
     Indication: Product used for unknown indication
     Route: 065
  4. BRINZOLAMIDE [Interacting]
     Active Substance: BRINZOLAMIDE
     Indication: Product used for unknown indication
     Route: 065
  5. BRINZOLAMIDE [Interacting]
     Active Substance: BRINZOLAMIDE
     Route: 065
  6. MYCOPHENOLIC ACID [Interacting]
     Active Substance: MYCOPHENOLIC ACID
     Indication: Product used for unknown indication
     Route: 065
  7. FLUVASTATIN [Interacting]
     Active Substance: FLUVASTATIN SODIUM
     Indication: Product used for unknown indication
     Route: 065
  8. ALISKIREN [Interacting]
     Active Substance: ALISKIREN
     Indication: Product used for unknown indication
     Route: 065
  9. PREGABALIN [Interacting]
     Active Substance: PREGABALIN
     Indication: Product used for unknown indication
     Route: 065
  10. PREGABALIN [Interacting]
     Active Substance: PREGABALIN
     Route: 065
  11. NILOTINIB [Interacting]
     Active Substance: NILOTINIB
     Indication: Product used for unknown indication
     Route: 065
  12. ZOLEDRONIC ACID [Interacting]
     Active Substance: ZOLEDRONIC ACID
     Indication: Product used for unknown indication
     Route: 065
  13. ACETAMINOPHEN [Interacting]
     Active Substance: ACETAMINOPHEN
     Indication: Product used for unknown indication
     Route: 065
  14. ESOMEPRAZOLE [Interacting]
     Active Substance: ESOMEPRAZOLE
     Indication: Product used for unknown indication
     Route: 065
  15. VENLAFAXINE [Interacting]
     Active Substance: VENLAFAXINE HYDROCHLORIDE
     Indication: Product used for unknown indication
     Route: 065
  16. ANASTROZOLE [Interacting]
     Active Substance: ANASTROZOLE
     Indication: Product used for unknown indication
     Route: 065
  17. ETANERCEPT [Interacting]
     Active Substance: ETANERCEPT
     Indication: Product used for unknown indication
     Route: 065
  18. ALENDRONATE SODIUM [Interacting]
     Active Substance: ALENDRONATE SODIUM
     Indication: Product used for unknown indication
     Route: 065
  19. EZETIMIBE [Interacting]
     Active Substance: EZETIMIBE
     Indication: Product used for unknown indication
     Route: 065
  20. DONEPEZIL [Interacting]
     Active Substance: DONEPEZIL
     Indication: Product used for unknown indication
     Route: 065
  21. MIRTAZAPINE [Interacting]
     Active Substance: MIRTAZAPINE
     Indication: Product used for unknown indication
     Route: 065
  22. TELMISARTAN [Interacting]
     Active Substance: TELMISARTAN
     Indication: Product used for unknown indication
     Route: 065
  23. NITROGLYCERIN [Interacting]
     Active Substance: NITROGLYCERIN
     Indication: Product used for unknown indication
     Route: 065
  24. TRAMADOL HYDROCHLORIDE [Interacting]
     Active Substance: TRAMADOL HYDROCHLORIDE
     Indication: Product used for unknown indication
     Route: 065
  25. TRAMADOL HYDROCHLORIDE [Interacting]
     Active Substance: TRAMADOL HYDROCHLORIDE
     Route: 065
  26. HYDROMORPHONE HYDROCHLORIDE [Interacting]
     Active Substance: HYDROMORPHONE HYDROCHLORIDE
     Indication: Product used for unknown indication
     Route: 065
  27. DILTIAZEM HYDROCHLORIDE [Interacting]
     Active Substance: DILTIAZEM HYDROCHLORIDE
     Indication: Product used for unknown indication
     Route: 065
  28. PRAVASTATIN SODIUM [Interacting]
     Active Substance: PRAVASTATIN SODIUM
     Indication: Product used for unknown indication
     Route: 065
  29. ESCITALOPRAM OXALATE [Interacting]
     Active Substance: ESCITALOPRAM OXALATE
     Indication: Product used for unknown indication
     Route: 065
  30. ESCITALOPRAM OXALATE [Interacting]
     Active Substance: ESCITALOPRAM OXALATE
     Route: 065
  31. ESCITALOPRAM OXALATE [Interacting]
     Active Substance: ESCITALOPRAM OXALATE
     Route: 065
  32. ESCHERICHIA COLI [Interacting]
     Active Substance: ESCHERICHIA COLI
     Indication: Product used for unknown indication
     Route: 065
  33. CILAZAPRIL ANHYDROUS [Interacting]
     Active Substance: CILAZAPRIL ANHYDROUS
     Indication: Product used for unknown indication
     Route: 065
  34. GLUCOSAMINE [Interacting]
     Active Substance: GLUCOSAMINE
     Indication: Product used for unknown indication
     Route: 065
  35. MYCOPHENOLATE MOFETIL [Interacting]
     Active Substance: MYCOPHENOLATE MOFETIL
     Indication: Product used for unknown indication
     Route: 065
  36. MYCOPHENOLATE MOFETIL [Interacting]
     Active Substance: MYCOPHENOLATE MOFETIL
     Route: 065
  37. VENLAFAXINE HYDROCHLORIDE [Interacting]
     Active Substance: VENLAFAXINE HYDROCHLORIDE
     Indication: Product used for unknown indication
     Route: 065
  38. INDOMETHACIN [Interacting]
     Active Substance: INDOMETHACIN
     Indication: Product used for unknown indication
     Route: 065
  39. FLUOXETINE HYDROCHLORIDE [Interacting]
     Active Substance: FLUOXETINE HYDROCHLORIDE
     Indication: Product used for unknown indication
     Route: 065
  40. GINKGO [Interacting]
     Active Substance: GINKGO
     Indication: Product used for unknown indication
     Route: 065
  41. GINKGO [Interacting]
     Active Substance: GINKGO
     Route: 065
  42. CODEINE [Interacting]
     Active Substance: CODEINE
     Indication: Product used for unknown indication
     Route: 065
  43. AGOMELATINE [Interacting]
     Active Substance: AGOMELATINE
     Indication: Product used for unknown indication
     Route: 065
  44. ATORVASTATIN CALCIUM [Interacting]
     Active Substance: ATORVASTATIN CALCIUM
     Indication: Product used for unknown indication
     Route: 065
  45. ATORVASTATIN CALCIUM [Interacting]
     Active Substance: ATORVASTATIN CALCIUM
     Route: 065
  46. CODEINE PHOSPHATE [Interacting]
     Active Substance: CODEINE PHOSPHATE
     Indication: Product used for unknown indication
     Route: 065
  47. DILTIAZEM [Interacting]
     Active Substance: DILTIAZEM
     Indication: Product used for unknown indication
     Route: 065
  48. CODEINE [Interacting]
     Active Substance: CODEINE
     Indication: Product used for unknown indication
     Route: 065
  49. PENTOXIFYLLINE [Interacting]
     Active Substance: PENTOXIFYLLINE
     Indication: Product used for unknown indication
     Route: 065
  50. BISOPROLOL FUMARATE [Interacting]
     Active Substance: BISOPROLOL FUMARATE
     Indication: Product used for unknown indication
     Route: 065
  51. BISOPROLOL FUMARATE [Interacting]
     Active Substance: BISOPROLOL FUMARATE
     Route: 065
  52. BISOPROLOL FUMARATE [Interacting]
     Active Substance: BISOPROLOL FUMARATE
     Route: 065
  53. EXEMESTANE [Interacting]
     Active Substance: EXEMESTANE
     Indication: Product used for unknown indication
     Route: 065
  54. EXEMESTANE [Interacting]
     Active Substance: EXEMESTANE
     Route: 065
  55. HUMAN IMMUNOGLOBULIN G [Interacting]
     Active Substance: HUMAN IMMUNOGLOBULIN G
     Indication: Product used for unknown indication
     Route: 065
  56. INDOMETHACIN SODIUM [Interacting]
     Active Substance: INDOMETHACIN SODIUM
     Indication: Product used for unknown indication
     Route: 065
  57. CODEINE SULFATE [Interacting]
     Active Substance: CODEINE SULFATE
     Indication: Product used for unknown indication
     Route: 065
  58. SOFOSBUVIR [Interacting]
     Active Substance: SOFOSBUVIR
     Indication: Product used for unknown indication
     Route: 065
  59. LEDIPASVIR [Interacting]
     Active Substance: LEDIPASVIR
     Indication: Product used for unknown indication
     Route: 065
  60. PENTAZOCINE [Interacting]
     Active Substance: PENTAZOCINE
     Indication: Product used for unknown indication
     Route: 065
  61. PENTAZOCINE [Interacting]
     Active Substance: PENTAZOCINE
     Route: 065
  62. DUTASTERIDE [Interacting]
     Active Substance: DUTASTERIDE
     Indication: Product used for unknown indication
     Route: 065
  63. VORTIOXETINE [Interacting]
     Active Substance: VORTIOXETINE
     Indication: Product used for unknown indication
     Route: 065
  64. VORTIOXETINE [Interacting]
     Active Substance: VORTIOXETINE
     Route: 065
  65. ASPIRIN [Interacting]
     Active Substance: ASPIRIN
     Indication: Product used for unknown indication
     Route: 065
  66. ASPIRIN [Interacting]
     Active Substance: ASPIRIN
     Route: 065
  67. BUPRENORPHINE [Interacting]
     Active Substance: BUPRENORPHINE
     Indication: Product used for unknown indication
     Dosage: 35 G, QH (Q1H)
     Route: 065
  68. BUPRENORPHINE [Interacting]
     Active Substance: BUPRENORPHINE
     Route: 065
  69. NAUZELIN [Interacting]
     Active Substance: DOMPERIDONE
     Indication: Product used for unknown indication
     Route: 065
  70. NAUZELIN [Interacting]
     Active Substance: DOMPERIDONE
     Route: 065
  71. HYDROMORPHONE [Interacting]
     Active Substance: HYDROMORPHONE
     Indication: Product used for unknown indication
     Dosage: 35 G, QH
     Route: 065
  72. HYDROMORPHONE [Interacting]
     Active Substance: HYDROMORPHONE
     Route: 065
  73. POTASSIUM IODIDE [Interacting]
     Active Substance: POTASSIUM IODIDE
     Indication: Product used for unknown indication
     Route: 065
  74. POTASSIUM IODIDE [Interacting]
     Active Substance: POTASSIUM IODIDE
     Route: 065
  75. ACECLOFENAC [Interacting]
     Active Substance: ACECLOFENAC
     Indication: Product used for unknown indication
     Route: 065
  76. PROPRANOLOL [Interacting]
     Active Substance: PROPRANOLOL HYDROCHLORIDE
     Indication: Product used for unknown indication
     Route: 065
  77. XYZAL [Interacting]
     Active Substance: LEVOCETIRIZINE DIHYDROCHLORIDE
     Indication: Product used for unknown indication
     Route: 065
  78. ESCHERICHIA COLI [Interacting]
     Active Substance: ESCHERICHIA COLI
     Indication: Product used for unknown indication
     Route: 065
  79. IBANDRONIC ACID [Interacting]
     Active Substance: IBANDRONIC ACID
     Indication: Product used for unknown indication
     Route: 065
  80. NORFLOXACIN [Interacting]
     Active Substance: NORFLOXACIN
     Indication: Product used for unknown indication
     Route: 065
  81. TAMSULOSIN HYDROCHLORIDE [Interacting]
     Active Substance: TAMSULOSIN HYDROCHLORIDE
     Indication: Product used for unknown indication
     Route: 065
  82. TAMSULOSIN HYDROCHLORIDE [Interacting]
     Active Substance: TAMSULOSIN HYDROCHLORIDE
     Route: 065
  83. NIMESULIDE [Interacting]
     Active Substance: NIMESULIDE
     Indication: Product used for unknown indication
     Route: 065
  84. NIMESULIDE [Interacting]
     Active Substance: NIMESULIDE
     Route: 065
  85. FENOFIBRATE [Interacting]
     Active Substance: FENOFIBRATE
     Indication: Product used for unknown indication
     Route: 065
  86. IODINE [Interacting]
     Active Substance: IODINE
     Indication: Product used for unknown indication
     Route: 065
  87. NITROGLYCERIN [Interacting]
     Active Substance: NITROGLYCERIN
     Indication: Product used for unknown indication
     Route: 065
  88. SODIUM PICOSULFATE [Interacting]
     Active Substance: SODIUM PICOSULFATE
     Indication: Product used for unknown indication
     Route: 065
  89. TOCILIZUMAB [Interacting]
     Active Substance: TOCILIZUMAB
     Indication: Product used for unknown indication
     Route: 065
  90. NITROGLYCERIN [Interacting]
     Active Substance: NITROGLYCERIN
     Indication: Product used for unknown indication
     Route: 065
  91. CHOLECALCIFEROL [Interacting]
     Active Substance: CHOLECALCIFEROL
     Indication: Product used for unknown indication
     Route: 065
  92. CHOLECALCIFEROL [Interacting]
     Active Substance: CHOLECALCIFEROL
     Route: 065
  93. DOCETAXEL [Interacting]
     Active Substance: DOCETAXEL
     Indication: Product used for unknown indication
     Route: 065
  94. VERAPAMIL HYDROCHLORIDE [Interacting]
     Active Substance: VERAPAMIL HYDROCHLORIDE
     Indication: Product used for unknown indication
     Route: 065
  95. VERAPAMIL HYDROCHLORIDE [Interacting]
     Active Substance: VERAPAMIL HYDROCHLORIDE
     Route: 065
  96. ENOXAPARIN SODIUM [Interacting]
     Active Substance: ENOXAPARIN SODIUM
     Indication: Product used for unknown indication
     Route: 065
  97. ENOXAPARIN SODIUM [Interacting]
     Active Substance: ENOXAPARIN SODIUM
     Route: 065
  98. ENOXAPARIN SODIUM [Interacting]
     Active Substance: ENOXAPARIN SODIUM
     Route: 065
  99. RIBAVIRIN [Interacting]
     Active Substance: RIBAVIRIN
     Indication: Product used for unknown indication
     Route: 065
  100. VERAPAMIL [Interacting]
     Active Substance: VERAPAMIL HYDROCHLORIDE
     Indication: Product used for unknown indication
     Route: 065
  101. PRAVASTATIN SODIUM [Interacting]
     Active Substance: PRAVASTATIN SODIUM
     Indication: Product used for unknown indication
     Route: 065

REACTIONS (24)
  - Generalised oedema [Fatal]
  - Urinary tract disorder [Fatal]
  - Nausea [Fatal]
  - Vomiting [Fatal]
  - Haematuria [Fatal]
  - Ascites [Fatal]
  - Tachycardia [Fatal]
  - Altered state of consciousness [Fatal]
  - Blood pressure increased [Fatal]
  - Pyrexia [Fatal]
  - Ocular discomfort [Fatal]
  - Syncope [Fatal]
  - Head discomfort [Fatal]
  - Arthralgia [Fatal]
  - Coma [Fatal]
  - Somnolence [Fatal]
  - Amaurosis fugax [Fatal]
  - Somnolence [Fatal]
  - Diarrhoea [Fatal]
  - Dyspnoea [Fatal]
  - Fall [Fatal]
  - Insomnia [Fatal]
  - Sepsis [Fatal]
  - Drug interaction [Fatal]
